FAERS Safety Report 17647621 (Version 2)
Quarter: 2020Q2

REPORT INFORMATION
  Report Type: Spontaneous
  Country: DE (occurrence: DE)
  Receive Date: 20200409
  Receipt Date: 20200409
  Transmission Date: 20200713
  Serious: Yes (Other)
  Sender: FDA-Public Use
  Company Number: DE-TEVA-2020-DE-1219804

PATIENT
  Age: 13 Year
  Sex: Female

DRUGS (1)
  1. ACICLOVIR [Suspect]
     Active Substance: ACYCLOVIR
     Indication: HERPES ZOSTER
     Dosage: 4000 MILLIGRAM DAILY;
     Route: 048
     Dates: start: 202003, end: 20200402

REACTIONS (4)
  - Pyrexia [Unknown]
  - Drug ineffective [Unknown]
  - Prescribed overdose [Unknown]
  - Altered state of consciousness [Unknown]

NARRATIVE: CASE EVENT DATE: 2020
